FAERS Safety Report 10418415 (Version 1)
Quarter: 2014Q3

REPORT INFORMATION
  Report Type: Spontaneous
  Country: US (occurrence: US)
  Receive Date: 20140829
  Receipt Date: 20140829
  Transmission Date: 20150326
  Serious: No
  Sender: FDA-Public Use
  Company Number: US-009507513-1408USA016470

PATIENT
  Age: 6 Year
  Sex: Male
  Weight: 23.58 kg

DRUGS (1)
  1. COPPERTONE KIDS SUNSCREEN SPF 70 [Suspect]
     Active Substance: AVOBENZONE\HOMOSALATE\OCTISALATE\OCTOCRYLENE\OXYBENZONE
     Indication: PRODUCT USED FOR UNKNOWN INDICATION
     Dosage: UNK, UNKNOWN
     Route: 061
     Dates: start: 20140825

REACTIONS (3)
  - Ocular hyperaemia [Not Recovered/Not Resolved]
  - Accidental exposure to product [Unknown]
  - Eye irritation [Not Recovered/Not Resolved]

NARRATIVE: CASE EVENT DATE: 20140825
